FAERS Safety Report 26103795 (Version 2)
Quarter: 2025Q4

REPORT INFORMATION
  Report Type: Report from Study
  Country: US (occurrence: US)
  Receive Date: 20251129
  Receipt Date: 20251229
  Transmission Date: 20260118
  Serious: Yes (Hospitalization)
  Sender: SANOFI AVENTIS
  Company Number: US-SA-2025SA351704

PATIENT
  Age: 57 Year
  Sex: Male
  Weight: 77.3 kg

DRUGS (97)
  1. ISATUXIMAB-IRFC [Suspect]
     Active Substance: ISATUXIMAB-IRFC
     Indication: Plasma cell myeloma refractory
     Dosage: 800 MG, QW
     Dates: start: 20220624, end: 20220629
  2. ISATUXIMAB-IRFC [Suspect]
     Active Substance: ISATUXIMAB-IRFC
     Dosage: 800 MG, QW
     Dates: start: 20220703, end: 20220710
  3. ISATUXIMAB-IRFC [Suspect]
     Active Substance: ISATUXIMAB-IRFC
     Dosage: 800 MG, QW
     Dates: start: 20220721, end: 20220803
  4. ISATUXIMAB-IRFC [Suspect]
     Active Substance: ISATUXIMAB-IRFC
     Dosage: 800 MG, BIW
     Dates: start: 20220804, end: 20220822
  5. ISATUXIMAB-IRFC [Suspect]
     Active Substance: ISATUXIMAB-IRFC
     Dosage: 800 MG, BIW
     Dates: start: 20220828, end: 20220903
  6. ISATUXIMAB-IRFC [Suspect]
     Active Substance: ISATUXIMAB-IRFC
     Dosage: 800 MG, BIW
     Dates: start: 20220918, end: 20221001
  7. ISATUXIMAB-IRFC [Suspect]
     Active Substance: ISATUXIMAB-IRFC
     Dosage: 800 MG, BIW
     Dates: start: 20221002, end: 20221012
  8. ISATUXIMAB-IRFC [Suspect]
     Active Substance: ISATUXIMAB-IRFC
     Dosage: 800 MG, BIW
     Dates: start: 20221030, end: 20221126
  9. ISATUXIMAB-IRFC [Suspect]
     Active Substance: ISATUXIMAB-IRFC
     Dosage: 800 MG, BIW
     Dates: start: 20221127, end: 20221224
  10. ISATUXIMAB-IRFC [Suspect]
     Active Substance: ISATUXIMAB-IRFC
     Dosage: 800 MG, BIW
     Dates: start: 20230108, end: 20230204
  11. ISATUXIMAB-IRFC [Suspect]
     Active Substance: ISATUXIMAB-IRFC
     Dosage: 800 MG, BIW
     Dates: start: 20230205, end: 20230304
  12. ISATUXIMAB-IRFC [Suspect]
     Active Substance: ISATUXIMAB-IRFC
     Dosage: 800 MG, BIW
     Dates: start: 20230305, end: 20230401
  13. ISATUXIMAB-IRFC [Suspect]
     Active Substance: ISATUXIMAB-IRFC
     Dosage: 800 MG, BIW
     Dates: start: 20230402, end: 20230429
  14. ISATUXIMAB-IRFC [Suspect]
     Active Substance: ISATUXIMAB-IRFC
     Dosage: 800 MG, BIW
     Dates: start: 20230430, end: 20230527
  15. ISATUXIMAB-IRFC [Suspect]
     Active Substance: ISATUXIMAB-IRFC
     Dosage: 800 MG, BIW
     Dates: start: 20230528, end: 20230610
  16. ISATUXIMAB-IRFC [Suspect]
     Active Substance: ISATUXIMAB-IRFC
     Dosage: 800 MG, BIW
     Dates: start: 20230625, end: 20230708
  17. ISATUXIMAB-IRFC [Suspect]
     Active Substance: ISATUXIMAB-IRFC
     Dosage: 800 MG, BIW
     Dates: start: 20230709, end: 20230805
  18. ISATUXIMAB-IRFC [Suspect]
     Active Substance: ISATUXIMAB-IRFC
     Dosage: 800 MG, BIW
     Dates: start: 20230806, end: 20230902
  19. ISATUXIMAB-IRFC [Suspect]
     Active Substance: ISATUXIMAB-IRFC
     Dosage: 800 MG, BIW
     Dates: start: 20230903, end: 20230930
  20. ISATUXIMAB-IRFC [Suspect]
     Active Substance: ISATUXIMAB-IRFC
     Dosage: 800 MG, BIW
     Dates: start: 20231001, end: 20231028
  21. ISATUXIMAB-IRFC [Suspect]
     Active Substance: ISATUXIMAB-IRFC
     Dosage: 800 MG, BIW
     Dates: start: 20231029, end: 20231125
  22. ISATUXIMAB-IRFC [Suspect]
     Active Substance: ISATUXIMAB-IRFC
     Dosage: 800 MG, BIW
     Dates: start: 20231126, end: 20231230
  23. ISATUXIMAB-IRFC [Suspect]
     Active Substance: ISATUXIMAB-IRFC
     Dosage: 800 MG, BIW
     Dates: start: 20231231, end: 20240205
  24. ISATUXIMAB-IRFC [Suspect]
     Active Substance: ISATUXIMAB-IRFC
     Dosage: 800 MG, BIW
     Dates: start: 20240218, end: 20240316
  25. ISATUXIMAB-IRFC [Suspect]
     Active Substance: ISATUXIMAB-IRFC
     Dosage: 800 MG, BIW
     Dates: start: 20240317, end: 20240413
  26. ISATUXIMAB-IRFC [Suspect]
     Active Substance: ISATUXIMAB-IRFC
     Dosage: 800 MG, BIW
     Dates: start: 20240414, end: 20240511
  27. ISATUXIMAB-IRFC [Suspect]
     Active Substance: ISATUXIMAB-IRFC
     Dosage: 800 MG, BIW
     Dates: start: 20240512, end: 20240608
  28. ISATUXIMAB-IRFC [Suspect]
     Active Substance: ISATUXIMAB-IRFC
     Dosage: 800 MG, BIW
     Dates: start: 20240609, end: 20240612
  29. DEXAMETHASONE [Suspect]
     Active Substance: DEXAMETHASONE
     Indication: Plasma cell myeloma refractory
     Dosage: 20 MG, QW
     Dates: start: 20220624, end: 20220629
  30. DEXAMETHASONE [Suspect]
     Active Substance: DEXAMETHASONE
     Dosage: 40 MG, BIW
     Dates: start: 20220703, end: 20220710
  31. DEXAMETHASONE [Suspect]
     Active Substance: DEXAMETHASONE
     Dosage: 40 MG, QW
     Dates: start: 20220721, end: 20220803
  32. DEXAMETHASONE [Suspect]
     Active Substance: DEXAMETHASONE
     Dosage: 40 MG, BIW
     Dates: start: 20220804, end: 20220822
  33. DEXAMETHASONE [Suspect]
     Active Substance: DEXAMETHASONE
     Dosage: 40 MG, BIW
     Dates: start: 20220828, end: 20220903
  34. DEXAMETHASONE [Suspect]
     Active Substance: DEXAMETHASONE
     Dosage: 20 MG (FREQUENCY: ON DAYS 1, 8, 15)
     Dates: start: 20220918, end: 20221001
  35. DEXAMETHASONE [Suspect]
     Active Substance: DEXAMETHASONE
     Dosage: 20 MG (FREQUENCY: ON DAYS 1, 8, 15)
     Dates: start: 20221002, end: 20221012
  36. DEXAMETHASONE [Suspect]
     Active Substance: DEXAMETHASONE
     Dosage: 20 MG (FREQUENCY: ON DAYS 1, 8, 15)
     Dates: start: 20221030, end: 20221126
  37. DEXAMETHASONE [Suspect]
     Active Substance: DEXAMETHASONE
     Dosage: 10 MG (FREQUNCY: ON DAYS 1, 8, 15)
     Dates: start: 20221127, end: 20221224
  38. DEXAMETHASONE [Suspect]
     Active Substance: DEXAMETHASONE
     Dosage: 10 MG (FREQUNCY: ON DAYS 1, 8, 15)
     Dates: start: 20230108, end: 20230204
  39. DEXAMETHASONE [Suspect]
     Active Substance: DEXAMETHASONE
     Dosage: 10 MG (FREQUNCY: ON DAYS 1, 8, 15)
     Dates: start: 20230205, end: 20230304
  40. DEXAMETHASONE [Suspect]
     Active Substance: DEXAMETHASONE
     Dosage: 10 MG (FREQUNCY: ON DAYS 1, 8, 15)
     Dates: start: 20230305, end: 20230401
  41. DEXAMETHASONE [Suspect]
     Active Substance: DEXAMETHASONE
     Dosage: 10 MG (FREQUNCY: ON DAYS 1, 8, 15)
     Dates: start: 20230402, end: 20230429
  42. DEXAMETHASONE [Suspect]
     Active Substance: DEXAMETHASONE
     Dosage: 10 MG (FREQUNCY: ON DAYS 1, 8, 15)
     Dates: start: 20230430, end: 20230527
  43. DEXAMETHASONE [Suspect]
     Active Substance: DEXAMETHASONE
     Dosage: 10 MG (FREQUNCY: ON DAYS 1, 8, 15)
     Dates: start: 20230528, end: 20230610
  44. DEXAMETHASONE [Suspect]
     Active Substance: DEXAMETHASONE
     Dosage: 10 MG (FREQUNCY: ON DAYS 1, 8, 15)
     Dates: start: 20230625, end: 20230708
  45. DEXAMETHASONE [Suspect]
     Active Substance: DEXAMETHASONE
     Dosage: 10 MG (FREQUNCY: ON DAYS 1, 8, 15)
     Dates: start: 20230709, end: 20230805
  46. DEXAMETHASONE [Suspect]
     Active Substance: DEXAMETHASONE
     Dosage: 10 MG (FREQUNCY: ON DAYS 1, 8, 15)
     Dates: start: 20230806, end: 20230902
  47. DEXAMETHASONE [Suspect]
     Active Substance: DEXAMETHASONE
     Dosage: 10 MG (FREQUNCY: ON DAYS 1, 8, 15)
     Dates: start: 20230903, end: 20230909
  48. DEXAMETHASONE [Suspect]
     Active Substance: DEXAMETHASONE
     Dosage: 8 MG (FREQUENCY: ON DAYS 1, 8, 15)
     Dates: start: 20230910, end: 20230930
  49. DEXAMETHASONE [Suspect]
     Active Substance: DEXAMETHASONE
     Dosage: 8 MG (FREQUNCY: ON DAYS 1, 8, 15)
     Dates: start: 20231001, end: 20231028
  50. DEXAMETHASONE [Suspect]
     Active Substance: DEXAMETHASONE
     Dosage: 8 MG (FREQUNCY: ON DAYS 1, 8, 15)
     Dates: start: 20231029, end: 20231125
  51. DEXAMETHASONE [Suspect]
     Active Substance: DEXAMETHASONE
     Dosage: 8 MG (FREQUNCY: ON DAYS 1, 8, 15)
     Dates: start: 20231126, end: 20231230
  52. DEXAMETHASONE [Suspect]
     Active Substance: DEXAMETHASONE
     Dosage: 8 MG (FREQUNCY: ON DAYS 1, 8, 15)
     Dates: start: 20231231, end: 20240205
  53. DEXAMETHASONE [Suspect]
     Active Substance: DEXAMETHASONE
     Dosage: 8 MG (FREQUNCY: ON DAYS 1, 8, 15)
     Dates: start: 20240218, end: 20240316
  54. DEXAMETHASONE [Suspect]
     Active Substance: DEXAMETHASONE
     Dosage: 8 MG (FREQUNCY: ON DAYS 1, 8, 15)
     Dates: start: 20240317, end: 20240413
  55. DEXAMETHASONE [Suspect]
     Active Substance: DEXAMETHASONE
     Dosage: 8 MG (FREQUNCY: ON DAYS 1, 8, 15)
     Dates: start: 20240414, end: 20240511
  56. DEXAMETHASONE [Suspect]
     Active Substance: DEXAMETHASONE
     Dosage: 8 MG (FREQUNCY: ON DAYS 1, 8, 15)
     Dates: start: 20240512, end: 20240608
  57. DEXAMETHASONE [Suspect]
     Active Substance: DEXAMETHASONE
     Dosage: 8 MG (FREQUNCY: ON DAYS 1, 8, 15)
     Dates: start: 20240609, end: 20240612
  58. CARFILZOMIB [Suspect]
     Active Substance: CARFILZOMIB
     Indication: Plasma cell myeloma refractory
     Dosage: 40 MG, QW
     Dates: start: 20220624, end: 20220629
  59. CARFILZOMIB [Suspect]
     Active Substance: CARFILZOMIB
     Dosage: 100 MG, QW
     Dates: start: 20220703, end: 20220710
  60. CARFILZOMIB [Suspect]
     Active Substance: CARFILZOMIB
     Dosage: 100 MG, QW
     Dates: start: 20220721, end: 20220803
  61. CARFILZOMIB [Suspect]
     Active Substance: CARFILZOMIB
     Dosage: 100 MG (FREQUNCY: ON DAYS 1, 8, 15)
     Dates: start: 20220804, end: 20220822
  62. CARFILZOMIB [Suspect]
     Active Substance: CARFILZOMIB
     Dosage: 100 MG (FREQUNCY: ON DAYS 1, 8, 15)
     Dates: start: 20220828, end: 20220903
  63. CARFILZOMIB [Suspect]
     Active Substance: CARFILZOMIB
     Dosage: 100 MG (FREQUNCY: ON DAYS 1, 8, 15)
     Dates: start: 20220911, end: 20221001
  64. CARFILZOMIB [Suspect]
     Active Substance: CARFILZOMIB
     Dosage: 100 MG (FREQUNCY: ON DAYS 1, 8, 15)
     Dates: start: 20221002, end: 20221012
  65. CARFILZOMIB [Suspect]
     Active Substance: CARFILZOMIB
     Dosage: 100 MG (FREQUNCY: ON DAYS 1, 8, 15)
     Dates: start: 20221030, end: 20221126
  66. CARFILZOMIB [Suspect]
     Active Substance: CARFILZOMIB
     Dosage: 100 MG (FREQUNCY: ON DAYS 1, 8, 15)
     Dates: start: 20221127, end: 20221224
  67. CARFILZOMIB [Suspect]
     Active Substance: CARFILZOMIB
     Dosage: 100 MG (FREQUNCY: ON DAYS 1, 8, 15)
     Dates: start: 20230108, end: 20230204
  68. CARFILZOMIB [Suspect]
     Active Substance: CARFILZOMIB
     Dosage: 100 MG (FREQUNCY: ON DAYS 1, 8, 15)
     Dates: start: 20230205, end: 20230304
  69. CARFILZOMIB [Suspect]
     Active Substance: CARFILZOMIB
     Dosage: 100 MG (FREQUNCY: ON DAYS 1, 8, 15)
     Dates: start: 20230305, end: 20230401
  70. CARFILZOMIB [Suspect]
     Active Substance: CARFILZOMIB
     Dosage: 100 MG (FREQUNCY: ON DAYS 1, 8, 15)
     Dates: start: 20230402, end: 20230429
  71. CARFILZOMIB [Suspect]
     Active Substance: CARFILZOMIB
     Dosage: 100 MG (FREQUNCY: ON DAYS 1, 8, 15)
     Dates: start: 20230430, end: 20230527
  72. CARFILZOMIB [Suspect]
     Active Substance: CARFILZOMIB
     Dosage: 100 MG (FREQUNCY: ON DAYS 1, 8, 15)
     Dates: start: 20230528, end: 20230610
  73. CARFILZOMIB [Suspect]
     Active Substance: CARFILZOMIB
     Dosage: 100 MG (FREQUNCY: ON DAYS 1, 8, 15)
     Dates: start: 20230625, end: 20230708
  74. CARFILZOMIB [Suspect]
     Active Substance: CARFILZOMIB
     Dosage: 100 MG (FREQUNCY: ON DAYS 1, 8, 15)
     Dates: start: 20230709, end: 20230805
  75. CARFILZOMIB [Suspect]
     Active Substance: CARFILZOMIB
     Dosage: 100 MG (FREQUNCY: ON DAYS 1, 8, 15)
     Dates: start: 20230806, end: 20230902
  76. CARFILZOMIB [Suspect]
     Active Substance: CARFILZOMIB
     Dosage: 100 MG (FREQUNCY: ON DAYS 1, 8, 15)
     Dates: start: 20230903, end: 20230930
  77. CARFILZOMIB [Suspect]
     Active Substance: CARFILZOMIB
     Dosage: 100 MG (FREQUNCY: ON DAYS 1, 8, 15)
     Dates: start: 20231001, end: 20231028
  78. CARFILZOMIB [Suspect]
     Active Substance: CARFILZOMIB
     Dosage: 100 MG (FREQUNCY: ON DAYS 1, 8, 15)
     Dates: start: 20231029, end: 20231125
  79. CARFILZOMIB [Suspect]
     Active Substance: CARFILZOMIB
     Dosage: 100 MG (FREQUNCY: ON DAYS 1, 8, 15)
     Dates: start: 20231126, end: 20231230
  80. CARFILZOMIB [Suspect]
     Active Substance: CARFILZOMIB
     Dosage: 100 MG (FREQUNCY: ON DAYS 1, 8, 15)
     Dates: start: 20231231, end: 20240105
  81. CARFILZOMIB [Suspect]
     Active Substance: CARFILZOMIB
     Dosage: 100 MG (FREQUNCY: ON DAYS 1, 8, 15)
     Dates: start: 20240218, end: 20240316
  82. CARFILZOMIB [Suspect]
     Active Substance: CARFILZOMIB
     Dosage: 100 MG (FREQUNCY: ON DAYS 1, 8, 15)
     Dates: start: 20240317, end: 20240413
  83. CARFILZOMIB [Suspect]
     Active Substance: CARFILZOMIB
     Dosage: 100 MG (FREQUNCY: ON DAYS 1, 8, 15)
     Dates: start: 20240414, end: 20240511
  84. CARFILZOMIB [Suspect]
     Active Substance: CARFILZOMIB
     Dosage: 100 MG (FREQUNCY: ON DAYS 1, 8, 15)
     Dates: start: 20240512, end: 20240608
  85. CARFILZOMIB [Suspect]
     Active Substance: CARFILZOMIB
     Dosage: 100 MG (FREQUNCY: ON DAYS 1, 8, 15)
     Dates: start: 20240609, end: 20240612
  86. BENADRYL [Concomitant]
     Active Substance: DIPHENHYDRAMINE HYDROCHLORIDE
     Dosage: UNK UNK, QCY
     Dates: start: 20220624
  87. ONDANSETRON [Concomitant]
     Active Substance: ONDANSETRON
     Dosage: UNK UNK, QCY
     Dates: start: 20220624
  88. VALACYCLOVIR HYDROCHLORIDE [Concomitant]
     Active Substance: VALACYCLOVIR HYDROCHLORIDE
     Indication: Prophylaxis
     Dosage: UNK
     Dates: start: 20181008
  89. OMEPRAZOLE [Concomitant]
     Active Substance: OMEPRAZOLE
     Dosage: UNK
     Dates: start: 20191002
  90. CHOLESTYRAMINE [Concomitant]
     Active Substance: CHOLESTYRAMINE
     Dosage: UNK
     Dates: start: 20200929
  91. ACETAMINOPHEN [Concomitant]
     Active Substance: ACETAMINOPHEN
     Indication: Premedication
     Dosage: UNK UNK, QCY
     Dates: start: 20220624
  92. PEPCID [Concomitant]
     Active Substance: FAMOTIDINE
     Indication: Premedication
     Dosage: UNK UNK, QCY
     Dates: start: 20220624
  93. RESTORIL [Concomitant]
     Active Substance: TEMAZEPAM
     Dosage: UNK
     Dates: start: 20180530
  94. CALCIUM [Concomitant]
     Active Substance: CALCIUM
     Indication: Prophylaxis
     Dosage: UNK
     Dates: start: 20180717
  95. VITAMIN D NOS [Concomitant]
     Active Substance: CHOLECALCIFEROL\ERGOCALCIFEROL
     Indication: Prophylaxis
     Dosage: UNK
     Dates: start: 20180717
  96. ZOMETA [Concomitant]
     Active Substance: ZOLEDRONIC ACID
     Dosage: UNK
     Dates: start: 20210831
  97. TRAZODONE [Concomitant]
     Active Substance: TRAZODONE HYDROCHLORIDE
     Dosage: UNK
     Dates: start: 20220809

REACTIONS (2)
  - Angina pectoris [Recovered/Resolved]
  - Headache [Recovered/Resolved]

NARRATIVE: CASE EVENT DATE: 20240613
